FAERS Safety Report 7156428-2 (Version None)
Quarter: 2010Q4

REPORT INFORMATION
  Report Type: 
  Country: None (occurrence: None)
  Receive Date: 20101214
  Receipt Date: 20101207
  Transmission Date: 20110411
  Serious: Yes (Other)
  Sender: FDA-Public Use
  Company Number: US-PERRIGO-10US015382

PATIENT
  Sex: Male
  Weight: 54.422 kg

DRUGS (6)
  1. ANTI NAUSEA LIQ 291 [Suspect]
     Indication: NAUSEA
     Dosage: ONE TABLESPOON EVERY 15 MINUTES
     Route: 048
     Dates: start: 20101203, end: 20101204
  2. ANTI NAUSEA LIQ 291 [Suspect]
     Dosage: TWO TABLESPOONS EVERY 15 MINUTES TWICE
     Route: 048
     Dates: start: 20101205, end: 20101205
  3. KALETRA [Concomitant]
     Indication: HIV TEST POSITIVE
     Dosage: 2000 MG, QD
     Route: 048
  4. TRUVADA [Concomitant]
     Indication: HIV TEST POSITIVE
     Dosage: 500 MG, QD
     Route: 048
  5. OXYCONTIN [Concomitant]
     Indication: FIBROMYALGIA
     Dosage: 325MG, ONE TABLET 3-4 TIMES DAILY
     Route: 048
  6. LYRICA [Concomitant]
     Indication: FIBROMYALGIA
     Dosage: 50 MG, BID
     Route: 048

REACTIONS (6)
  - ABDOMINAL PAIN [None]
  - CHILLS [None]
  - DEHYDRATION [None]
  - NAUSEA [None]
  - PYREXIA [None]
  - VOMITING [None]
